FAERS Safety Report 16927151 (Version 1)
Quarter: 2019Q4

REPORT INFORMATION
  Report Type: Spontaneous
  Country: CA (occurrence: CA)
  Receive Date: 20191016
  Receipt Date: 20191016
  Transmission Date: 20200122
  Serious: Yes (Hospitalization, Other)
  Sender: FDA-Public Use
  Company Number: CA-TEVA-2019-CA-1122233

PATIENT
  Age: 37 Year
  Sex: Male

DRUGS (1)
  1. SILDENAFIL CITRATE. [Suspect]
     Active Substance: SILDENAFIL CITRATE
     Indication: SEXUALLY ACTIVE
     Route: 048

REACTIONS (3)
  - Product use in unapproved indication [Not Recovered/Not Resolved]
  - Erection increased [Not Recovered/Not Resolved]
  - Cardiac disorder [Not Recovered/Not Resolved]
